FAERS Safety Report 9504233 (Version 1)
Quarter: 2013Q3

REPORT INFORMATION
  Report Type: Spontaneous
  Country: US (occurrence: US)
  Receive Date: 20130906
  Receipt Date: 20130906
  Transmission Date: 20140515
  Serious: Yes (Death, Hospitalization)
  Sender: FDA-Public Use
  Company Number: US-GLAXOSMITHKLINE-A1040493A

PATIENT
  Age: 49 Year
  Sex: Female

DRUGS (2)
  1. HYCAMTIN [Suspect]
     Indication: COLON CANCER
     Dosage: .25MG AS DIRECTED
     Route: 048
     Dates: start: 20130725, end: 20130827
  2. AFINITOR [Concomitant]

REACTIONS (2)
  - Death [Fatal]
  - Ill-defined disorder [Unknown]
